FAERS Safety Report 10172816 (Version 3)
Quarter: 2014Q3

REPORT INFORMATION
  Report Type: Spontaneous
  Country: US (occurrence: US)
  Receive Date: 20140515
  Receipt Date: 20140709
  Transmission Date: 20150326
  Serious: Yes (Death, Life-Threatening, Disabling, Other)
  Sender: FDA-Public Use
  Company Number: US-GLAXOSMITHKLINE-A1072286A

PATIENT
  Age: 91 Year
  Sex: Female
  Weight: 52.3 kg

DRUGS (12)
  1. ASPIRIN. [Suspect]
     Active Substance: ASPIRIN
     Indication: PRODUCT USED FOR UNKNOWN INDICATION
     Dosage: 81MG PER DAY
     Route: 048
  2. MULTIVITAMIN [Suspect]
     Active Substance: VITAMINS
     Indication: PRODUCT USED FOR UNKNOWN INDICATION
     Dosage: 1TAB PER DAY
     Route: 048
  3. LASIX [Concomitant]
     Active Substance: FUROSEMIDE
  4. CELEBREX [Suspect]
     Active Substance: CELECOXIB
     Indication: PRODUCT USED FOR UNKNOWN INDICATION
     Dosage: 200MG TWICE PER DAY
     Route: 048
  5. LEVOTHYROXINE [Suspect]
     Active Substance: LEVOTHYROXINE
     Indication: PRODUCT USED FOR UNKNOWN INDICATION
     Route: 048
  6. COREG [Suspect]
     Active Substance: CARVEDILOL
     Indication: PRODUCT USED FOR UNKNOWN INDICATION
     Dosage: 6.25MG TWICE PER DAY
     Route: 048
  7. CALCIUM ACETATE. [Concomitant]
     Active Substance: CALCIUM ACETATE
  8. TOBACCO [Suspect]
     Active Substance: TOBACCO LEAF
     Indication: PRODUCT USED FOR UNKNOWN INDICATION
     Route: 065
  9. CARVEDILOL. [Concomitant]
     Active Substance: CARVEDILOL
  10. ADVAIR HFA [Suspect]
     Active Substance: FLUTICASONE PROPIONATE\SALMETEROL XINAFOATE
     Indication: CHRONIC OBSTRUCTIVE PULMONARY DISEASE
     Dosage: 1PUFF TWICE PER DAY
     Route: 055
     Dates: start: 2011
  11. ALBUTEROL. [Suspect]
     Active Substance: ALBUTEROL
     Indication: PRODUCT USED FOR UNKNOWN INDICATION
     Dosage: 2PUFF FOUR TIMES PER DAY
     Route: 055
  12. PROAIR HFA [Concomitant]
     Active Substance: ALBUTEROL SULFATE

REACTIONS (29)
  - Breath sounds abnormal [Unknown]
  - Hypoxia [Unknown]
  - Arrhythmia [Fatal]
  - Gastrointestinal disorder [Unknown]
  - Cyanosis [Unknown]
  - Injury [Unknown]
  - Skin discolouration [Unknown]
  - Pulseless electrical activity [Unknown]
  - Heart rate irregular [Unknown]
  - Cardiac failure congestive [Fatal]
  - Ventricular fibrillation [Unknown]
  - Resuscitation [Unknown]
  - Pupil fixed [Unknown]
  - Tobacco user [Unknown]
  - Cardio-respiratory arrest [Fatal]
  - Acute myocardial infarction [Fatal]
  - Endotracheal intubation [Unknown]
  - Arteriosclerosis [Fatal]
  - Subcutaneous emphysema [Unknown]
  - Choking [Unknown]
  - Cardioversion [Unknown]
  - Endotracheal intubation complication [Unknown]
  - Crepitations [Unknown]
  - Cardiac arrest [Unknown]
  - Depressed level of consciousness [Unknown]
  - Peripheral coldness [Unknown]
  - Hypertension [Unknown]
  - Chronic obstructive pulmonary disease [Unknown]
  - Dyspnoea [Unknown]

NARRATIVE: CASE EVENT DATE: 20140311
